FAERS Safety Report 8340325-0 (Version None)
Quarter: 2012Q2

REPORT INFORMATION
  Report Type: 
  Country: None (occurrence: None)
  Receive Date: 20120507
  Receipt Date: 20120507
  Transmission Date: 20120825
  Serious: Yes (Other)
  Sender: FDA-Public Use
  Company Number: None

PATIENT
  Sex: Male
  Weight: 108.4 kg

DRUGS (1)
  1. SINEMET [Suspect]
     Indication: DYSTONIA
     Dosage: |DOSAGETEXT: 1 TAB||STRENGTH: 25/100||FREQ: 3X DAY||ROUTE: ORAL|
     Route: 048
     Dates: start: 20120502, end: 20120502

REACTIONS (3)
  - PRODUCT SUBSTITUTION ISSUE [None]
  - PRODUCT QUALITY ISSUE [None]
  - DRUG INEFFECTIVE [None]
